FAERS Safety Report 23332523 (Version 2)
Quarter: 2024Q1

REPORT INFORMATION
  Report Type: Other
  Country: GR (occurrence: GR)
  Receive Date: 20231222
  Receipt Date: 20240122
  Transmission Date: 20240410
  Serious: Yes (Life-Threatening, Hospitalization, Other)
  Sender: FDA-Public Use
  Company Number: GR-Merck Healthcare KGaA-2023494987

PATIENT
  Age: 60 Year
  Sex: Female

DRUGS (1)
  1. METFORMIN [Suspect]
     Active Substance: METFORMIN HYDROCHLORIDE
     Indication: Type 2 diabetes mellitus

REACTIONS (10)
  - Coma [Recovering/Resolving]
  - Shock [Unknown]
  - Lactic acidosis [Recovered/Resolved]
  - Dehydration [Unknown]
  - Acute kidney injury [Recovered/Resolved]
  - Blood potassium increased [Unknown]
  - Impaired gastric emptying [Unknown]
  - Discoloured vomit [Unknown]
  - Diarrhoea [Unknown]
  - Leukocytosis [Recovering/Resolving]
